FAERS Safety Report 9303013 (Version 1)
Quarter: 2013Q2

REPORT INFORMATION
  Report Type: Report from Study
  Country: US (occurrence: US)
  Receive Date: 20130522
  Receipt Date: 20130522
  Transmission Date: 20140414
  Serious: Yes (Hospitalization)
  Sender: FDA-Public Use
  Company Number: US-BRISTOL-MYERS SQUIBB COMPANY-18892398

PATIENT
  Age: 66 Year
  Sex: Male
  Weight: 80.6 kg

DRUGS (3)
  1. PRAVASTATIN SODIUM [Suspect]
     Indication: ACUTE MYELOID LEUKAEMIA
     Dates: start: 20130425, end: 20130501
  2. IDARUBICIN [Suspect]
     Indication: ACUTE MYELOID LEUKAEMIA
     Dates: start: 20130428, end: 20130430
  3. CYTARABINE [Suspect]
     Indication: ACUTE MYELOID LEUKAEMIA
     Dates: start: 20130428, end: 20130501

REACTIONS (1)
  - Sepsis [Unknown]
